FAERS Safety Report 7843571-5 (Version None)
Quarter: 2011Q4

REPORT INFORMATION
  Report Type: 
  Country: None (occurrence: None)
  Receive Date: 20111025
  Receipt Date: 20111013
  Transmission Date: 20120403
  Serious: Yes (Life-Threatening, Hospitalization)
  Sender: FDA-Public Use
  Company Number: US-ROCHE-1004440

PATIENT
  Sex: Male

DRUGS (12)
  1. CARBOPLATIN [Suspect]
     Indication: NON-SMALL CELL LUNG CANCER
     Dosage: 6 AUG
     Route: 042
  2. IBUPROFEN [Concomitant]
     Dates: start: 20010101
  3. CYANOCOBALAMIN [Concomitant]
     Dates: start: 20110411
  4. AVASTIN [Suspect]
     Indication: NON-SMALL CELL LUNG CANCER
     Route: 042
  5. HYDROCODONE BITARTRATE [Concomitant]
     Dates: start: 20110201, end: 20111006
  6. VERAPAMIL [Concomitant]
     Dates: start: 19920101
  7. GLUCOSAMINE CHONDROITIN COMPLEX [Concomitant]
     Dates: start: 20010101
  8. FOLIC ACID [Concomitant]
     Dates: start: 20110411
  9. AVASTIN [Suspect]
     Route: 042
     Dates: start: 20110418
  10. LIPITOR [Concomitant]
     Dates: start: 19950101
  11. PEMETREXED DISODIUM [Suspect]
     Indication: NON-SMALL CELL LUNG CANCER
     Route: 042
     Dates: start: 20110418
  12. TRAMADOL HCL [Concomitant]
     Dates: start: 20110404

REACTIONS (5)
  - ATRIAL FLUTTER [None]
  - DYSPNOEA [None]
  - PULMONARY MASS [None]
  - TACHYCARDIA [None]
  - CHEST PAIN [None]
